FAERS Safety Report 5577648-4 (Version None)
Quarter: 2007Q4

REPORT INFORMATION
  Report Type: 
  Country: None (occurrence: None)
  Receive Date: 20071227
  Receipt Date: 20071217
  Transmission Date: 20080405
  Serious: Yes (Death)
  Sender: FDA-Public Use
  Company Number: 2007US000168

PATIENT
  Age: 68 Year
  Sex: Male
  Weight: 81.6 kg

DRUGS (1)
  1. AMEVIVE [Suspect]
     Indication: PSORIASIS
     Dosage: INTRAMUSCULAR
     Route: 030
     Dates: start: 20040225, end: 20041215

REACTIONS (2)
  - PLEURAL EFFUSION [None]
  - PULMONARY MASS [None]
